FAERS Safety Report 8169763-6 (Version None)
Quarter: 2012Q1

REPORT INFORMATION
  Report Type: 
  Country: None (occurrence: None)
  Receive Date: 20120228
  Receipt Date: 20120223
  Transmission Date: 20120608
  Serious: Yes (Hospitalization)
  Sender: FDA-Public Use
  Company Number: US-JNJFOC-20120213259

PATIENT

DRUGS (2)
  1. NUCYNTA ER [Suspect]
     Indication: PRODUCT USED FOR UNKNOWN INDICATION
     Dosage: EITHER 50 OR 75 MG FOUR TIMES A DAY AS NEEDED
     Route: 065
  2. UNSPECIFED MEDICATIONS [Concomitant]
     Route: 065

REACTIONS (2)
  - VERTIGO [None]
  - HEADACHE [None]
